FAERS Safety Report 6088463-X (Version None)
Quarter: 2009Q1

REPORT INFORMATION
  Report Type: 
  Country: None (occurrence: None)
  Receive Date: 20090224
  Receipt Date: 20090213
  Transmission Date: 20090719
  Serious: Yes (Hospitalization)
  Sender: FDA-Public Use
  Company Number: HU-JNJFOC-20090204064

PATIENT
  Age: 51 Year
  Sex: Male

DRUGS (4)
  1. REMICADE [Suspect]
     Indication: CROHN'S DISEASE
     Route: 042
  2. AZATHIOPRINE SODIUM [Concomitant]
     Indication: CROHN'S DISEASE
  3. METHLPREDNISOLONE [Concomitant]
     Indication: CROHN'S DISEASE
  4. MESALAZINE [Concomitant]
     Indication: CROHN'S DISEASE

REACTIONS (2)
  - PNEUMONIA [None]
  - TUBERCULOSIS [None]
